FAERS Safety Report 15155390 (Version 1)
Quarter: 2018Q3

REPORT INFORMATION
  Report Type: Spontaneous
  Country: JP (occurrence: JP)
  Receive Date: 20180717
  Receipt Date: 20180717
  Transmission Date: 20181010
  Serious: Yes (Death)
  Sender: FDA-Public Use
  Company Number: PHJP2018JP013841

PATIENT
  Age: 63 Year
  Sex: Male

DRUGS (3)
  1. SUNITINIB MALATE. [Concomitant]
     Active Substance: SUNITINIB MALATE
     Indication: GASTROINTESTINAL STROMAL TUMOUR
     Dosage: UNK
     Route: 065
  2. REGORAFENIB. [Concomitant]
     Active Substance: REGORAFENIB
     Indication: GASTROINTESTINAL STROMAL TUMOUR
     Dosage: UNK
     Route: 065
  3. IMATINIB [Suspect]
     Active Substance: IMATINIB
     Indication: GASTROINTESTINAL STROMAL TUMOUR
     Dosage: UNK
     Route: 048

REACTIONS (6)
  - Dyspnoea [Fatal]
  - Pulmonary tuberculosis [Fatal]
  - Haemoptysis [Fatal]
  - Pulmonary cavitation [Fatal]
  - Productive cough [Fatal]
  - Depressed level of consciousness [Fatal]
